FAERS Safety Report 7936713-4 (Version None)
Quarter: 2011Q4

REPORT INFORMATION
  Report Type: 
  Country: None (occurrence: None)
  Receive Date: 20111123
  Receipt Date: 20111111
  Transmission Date: 20120403
  Serious: Yes (Hospitalization)
  Sender: FDA-Public Use
  Company Number: DE-CELGENEUS-062-21880-11103314

PATIENT
  Age: 52 Year
  Sex: Female
  Weight: 90 kg

DRUGS (2)
  1. REVLIMID [Suspect]
     Indication: AMYLOIDOSIS
     Dosage: 15 MILLIGRAM
     Route: 048
     Dates: start: 20110926, end: 20111016
  2. BORTEZOMIB [Suspect]
     Indication: AMYLOIDOSIS
     Route: 041
     Dates: start: 20110301, end: 20110801

REACTIONS (1)
  - THYROID DISORDER [None]
